FAERS Safety Report 7428816-8 (Version None)
Quarter: 2011Q2

REPORT INFORMATION
  Report Type: 
  Country: None (occurrence: None)
  Receive Date: 20110421
  Receipt Date: 20110418
  Transmission Date: 20111010
  Serious: Yes (Hospitalization, Other)
  Sender: FDA-Public Use
  Company Number: KR-PFIZER INC-2011084535

PATIENT
  Age: 45 Year
  Sex: Male

DRUGS (6)
  1. VENLAFAXINE HCL [Suspect]
     Dosage: 150 MG, UNK
  2. PAROXETINE [Concomitant]
  3. VENLAFAXINE HCL [Suspect]
     Indication: DEPRESSION
     Dosage: 150 MG, UNK
  4. VENLAFAXINE HCL [Suspect]
     Dosage: 300 MG, UNK
  5. VENLAFAXINE HCL [Suspect]
     Dosage: 1500 MG, (75 MG X 20 PILLS) DAILY
  6. BUPROPION [Concomitant]

REACTIONS (6)
  - WITHDRAWAL SYNDROME [None]
  - OVERDOSE [None]
  - SUICIDE ATTEMPT [None]
  - HYPERTENSION [None]
  - DRUG DEPENDENCE [None]
  - TACHYCARDIA [None]
